FAERS Safety Report 14735622 (Version 3)
Quarter: 2021Q4

REPORT INFORMATION
  Report Type: Spontaneous
  Country: JP (occurrence: JP)
  Receive Date: 20180409
  Receipt Date: 20211213
  Transmission Date: 20220303
  Serious: Yes (Other)
  Sender: FDA-Public Use
  Company Number: JP-BAUSCH-2012VX005500

PATIENT
  Sex: Male

DRUGS (8)
  1. VISUDYNE [Suspect]
     Active Substance: VERTEPORFIN
     Indication: Age-related macular degeneration
     Route: 042
     Dates: start: 20111003
  2. VISUDYNE [Suspect]
     Active Substance: VERTEPORFIN
     Route: 042
     Dates: start: 20111216
  3. VISUDYNE [Suspect]
     Active Substance: VERTEPORFIN
     Route: 042
     Dates: start: 20120222, end: 20120222
  4. VISUDYNE [Suspect]
     Active Substance: VERTEPORFIN
     Route: 042
     Dates: start: 20120309, end: 20120309
  5. LUCENTIS [Suspect]
     Active Substance: RANIBIZUMAB
     Indication: Age-related macular degeneration
     Route: 031
     Dates: start: 20111014
  6. LUCENTIS [Suspect]
     Active Substance: RANIBIZUMAB
     Route: 031
     Dates: start: 20111118
  7. LUCENTIS [Suspect]
     Active Substance: RANIBIZUMAB
     Route: 031
     Dates: start: 20111216, end: 20111216
  8. LUCENTIS [Suspect]
     Active Substance: RANIBIZUMAB
     Route: 031
     Dates: start: 20120222, end: 20120222

REACTIONS (7)
  - Retinal vascular thrombosis [Unknown]
  - Eye oedema [Unknown]
  - Condition aggravated [Unknown]
  - Retinal oedema [Unknown]
  - Visual impairment [Unknown]
  - Visual acuity reduced [Unknown]
  - Vision blurred [Unknown]

NARRATIVE: CASE EVENT DATE: 20111222
